FAERS Safety Report 6536036-4 (Version None)
Quarter: 2010Q1

REPORT INFORMATION
  Report Type: 
  Country: None (occurrence: None)
  Receive Date: 20100113
  Receipt Date: 20071023
  Transmission Date: 20100710
  Serious: Yes (Hospitalization, Other)
  Sender: FDA-Public Use
  Company Number: US-ELI_LILLY_AND_COMPANY-US200710004000

PATIENT
  Sex: Female

DRUGS (12)
  1. CYMBALTA [Suspect]
     Indication: PAIN
     Dosage: 30 MG, UNK
     Route: 048
     Dates: start: 20071009, end: 20071010
  2. DILTIAZEM [Concomitant]
  3. ENALAPRIL [Concomitant]
  4. ATENOLOL [Concomitant]
  5. LEVOXYL [Concomitant]
  6. ESTRATEST [Concomitant]
  7. NEXIUM [Concomitant]
  8. LIDODERM [Concomitant]
  9. NAPROXEN [Concomitant]
  10. COLACE [Concomitant]
  11. MORPHINE [Concomitant]
  12. PHENERGAN HCL [Concomitant]

REACTIONS (7)
  - ASPARTATE AMINOTRANSFERASE INCREASED [None]
  - ASYMPTOMATIC BACTERIURIA [None]
  - BLOOD PRESSURE INADEQUATELY CONTROLLED [None]
  - FLUSHING [None]
  - HYPOKALAEMIA [None]
  - PYREXIA [None]
  - VOMITING [None]
